FAERS Safety Report 9159383 (Version 2)
Quarter: 2013Q2

REPORT INFORMATION
  Report Type: Spontaneous
  Country: MX (occurrence: MX)
  Receive Date: 20130313
  Receipt Date: 20130408
  Transmission Date: 20140414
  Serious: Yes (Other)
  Sender: FDA-Public Use
  Company Number: PHHY2012MX103892

PATIENT
  Age: 85 Year
  Sex: Female

DRUGS (6)
  1. DIOVAN [Suspect]
     Indication: HYPERTENSION
     Dosage: 1 DF (320 MG) DAILY
     Route: 048
  2. NIFEDIPINE [Concomitant]
     Indication: HYPERTENSION
     Dosage: 1 DF, DAILY
     Dates: start: 200001
  3. METOPROLOL [Concomitant]
     Indication: HYPERTENSION
     Dosage: 1 DF, DAILY
     Dates: start: 200001
  4. ASPIRIN PROTECT [Concomitant]
     Indication: CARDIOVASCULAR DISORDER
     Dosage: 1 DF, DAILY
     Dates: start: 200001
  5. HYDROCHLOROTHIAZIDE [Concomitant]
     Dosage: 0.5 DF, UNK
     Dates: start: 200001
  6. CAPTOPRIL [Concomitant]
     Dosage: 0.5 DF, PRN

REACTIONS (8)
  - Cerebral infarction [Recovering/Resolving]
  - Angiopathy [Not Recovered/Not Resolved]
  - Carbohydrate intolerance [Not Recovered/Not Resolved]
  - Constipation [Recovering/Resolving]
  - Blood glucose increased [Not Recovered/Not Resolved]
  - Urinary tract infection [Not Recovered/Not Resolved]
  - Abnormal behaviour [Not Recovered/Not Resolved]
  - Insomnia [Not Recovered/Not Resolved]
